FAERS Safety Report 23971426 (Version 2)
Quarter: 2024Q2

REPORT INFORMATION
  Report Type: Spontaneous
  Country: IT (occurrence: IT)
  Receive Date: 20240613
  Receipt Date: 20240627
  Transmission Date: 20240716
  Serious: Yes (Other)
  Sender: FDA-Public Use
  Company Number: None

PATIENT
  Age: 72 Year
  Sex: Female
  Weight: 60 kg

DRUGS (2)
  1. FULVESTRANT [Suspect]
     Active Substance: FULVESTRANT
     Indication: Breast cancer
     Dosage: 250 MG, SOLUTION FOR INJECTION IN PRE-FILLED SYRINGE
     Route: 030
     Dates: start: 20240605, end: 20240605
  2. KISQALI [Concomitant]
     Active Substance: RIBOCICLIB
     Indication: Breast cancer
     Dosage: 200 MG, 3 TABLETS / DAY
     Route: 048
     Dates: start: 20240206

REACTIONS (2)
  - Bronchospasm [Recovered/Resolved]
  - Erythema [Recovered/Resolved]

NARRATIVE: CASE EVENT DATE: 20240605
